FAERS Safety Report 25022600 (Version 1)
Quarter: 2025Q1

REPORT INFORMATION
  Report Type: Spontaneous
  Country: US (occurrence: US)
  Receive Date: 20250228
  Receipt Date: 20250228
  Transmission Date: 20250409
  Serious: No
  Sender: ALEXION PHARMACEUTICALS
  Company Number: US-AstraZeneca-CH-00811977A

PATIENT

DRUGS (1)
  1. NEXIUM [Suspect]
     Active Substance: ESOMEPRAZOLE MAGNESIUM
     Indication: Gastrooesophageal reflux disease

REACTIONS (9)
  - Drug ineffective [Unknown]
  - Product storage error [Unknown]
  - Gastrooesophageal reflux disease [Unknown]
  - Exposure during pregnancy [Unknown]
  - Vomiting projectile [Unknown]
  - Abdominal discomfort [Unknown]
  - Intentional product use issue [Not Recovered/Not Resolved]
  - Product dose omission issue [Unknown]
  - Inability to afford medication [Unknown]
